FAERS Safety Report 23645299 (Version 1)
Quarter: 2024Q1

REPORT INFORMATION
  Report Type: Spontaneous
  Country: US (occurrence: US)
  Receive Date: 20240318
  Receipt Date: 20240318
  Transmission Date: 20240410
  Serious: Yes (Hospitalization)
  Sender: FDA-Public Use
  Company Number: US-BoehringerIngelheim-2024-BI-014767

PATIENT
  Sex: Female

DRUGS (2)
  1. JARDIANCE [Suspect]
     Active Substance: EMPAGLIFLOZIN
     Indication: Product used for unknown indication
  2. VYNDAMAX [Concomitant]
     Active Substance: TAFAMIDIS
     Indication: Product used for unknown indication
     Route: 048

REACTIONS (10)
  - Pleural effusion [Unknown]
  - Abdominal distension [Unknown]
  - Urinary tract infection [Unknown]
  - Vomiting [Unknown]
  - Asthenia [Unknown]
  - Loss of consciousness [Unknown]
  - Fall [Unknown]
  - Intestinal obstruction [Unknown]
  - Weight fluctuation [Unknown]
  - Hypotension [Recovered/Resolved]
